FAERS Safety Report 5197809-6 (Version None)
Quarter: 2006Q4

REPORT INFORMATION
  Report Type: 
  Country: None (occurrence: None)
  Receive Date: 20061228
  Receipt Date: 20061218
  Transmission Date: 20070319
  Serious: Yes (Hospitalization)
  Sender: FDA-Public Use
  Company Number: 2006SP006790

PATIENT
  Age: 52 Year
  Sex: Male
  Weight: 65 kg

DRUGS (9)
  1. TEMODAL [Suspect]
     Indication: GLIOBLASTOMA MULTIFORME
     Dosage: 150 MG/M2, QD; PO, 200 MG/M2, QD; PO, 150 MG/M2; QD; PO
     Route: 048
     Dates: start: 20060828, end: 20060901
  2. TEMODAL [Suspect]
     Indication: GLIOBLASTOMA MULTIFORME
     Dosage: 150 MG/M2, QD; PO, 200 MG/M2, QD; PO, 150 MG/M2; QD; PO
     Route: 048
     Dates: start: 20060925, end: 20060929
  3. TEMODAL [Suspect]
     Indication: GLIOBLASTOMA MULTIFORME
     Dosage: 150 MG/M2, QD; PO, 200 MG/M2, QD; PO, 150 MG/M2; QD; PO
     Route: 048
     Dates: start: 20061125, end: 20061129
  4. RADIOTHERAPY [Concomitant]
  5. AMOXAN [Concomitant]
  6. ISALON [Concomitant]
  7. MYSTAN [Concomitant]
  8. DEPAKENE [Concomitant]
  9. ALEVIATIN [Concomitant]

REACTIONS (6)
  - BONE MARROW FAILURE [None]
  - HAEMOGLOBIN DECREASED [None]
  - INFECTION [None]
  - PLATELET COUNT DECREASED [None]
  - PNEUMONIA BACTERIAL [None]
  - POSTOPERATIVE INFECTION [None]
